FAERS Safety Report 6439811-X (Version None)
Quarter: 2009Q4

REPORT INFORMATION
  Report Type: 
  Country: None (occurrence: None)
  Receive Date: 20091113
  Receipt Date: 20091103
  Transmission Date: 20100525
  Serious: No
  Sender: FDA-Public Use
  Company Number: US-B.I. PHARMACEUTICALS,INC./RIDGEFIELD-2009-BP-12811BP

PATIENT
  Sex: Female

DRUGS (4)
  1. MICARDIS [Suspect]
     Indication: HYPERTENSION
     Dosage: 80 MG
     Route: 048
     Dates: start: 20091028
  2. ATENOLOL [Concomitant]
     Indication: HYPERTENSION
  3. K-DUR [Concomitant]
     Indication: BLOOD POTASSIUM DECREASED
  4. SYNTHROID [Concomitant]
     Indication: HYPOTHYROIDISM

REACTIONS (4)
  - MUSCLE SPASMS [None]
  - MUSCLE TWITCHING [None]
  - OEDEMA PERIPHERAL [None]
  - PAIN IN EXTREMITY [None]
